FAERS Safety Report 4750080-9 (Version None)
Quarter: 2005Q3

REPORT INFORMATION
  Report Type: 
  Country: None (occurrence: None)
  Receive Date: 20050822
  Receipt Date: 20050804
  Transmission Date: 20060218
  Serious: Yes (Hospitalization, Congenital Anomaly)
  Sender: FDA-Public Use
  Company Number: 2005-BP-13407RO

PATIENT
  Age: 35 Week
  Sex: Male

DRUGS (1)
  1. METHOTREXATE [Suspect]
     Dosage: IN-TUERO EXPOSURE , IU
     Route: 015

REACTIONS (11)
  - CAESAREAN SECTION [None]
  - CONGENITAL ACROCHORDON [None]
  - CONGENITAL GENITAL MALFORMATION MALE [None]
  - CONGENITAL SCOLIOSIS [None]
  - DRUG EXPOSURE DURING PREGNANCY [None]
  - FOETAL DISTRESS SYNDROME [None]
  - GENITALIA EXTERNAL AMBIGUOUS [None]
  - HYPOSPADIAS [None]
  - PREMATURE BABY [None]
  - RIB DEFORMITY [None]
  - SPINE MALFORMATION [None]
